FAERS Safety Report 11255683 (Version 2)
Quarter: 2015Q3

REPORT INFORMATION
  Report Type: Spontaneous
  Country: US (occurrence: US)
  Receive Date: 20150709
  Receipt Date: 20150710
  Transmission Date: 20151125
  Serious: Yes (Death)
  Sender: FDA-Public Use
  Company Number: US-TEVA-575073USA

PATIENT

DRUGS (1)
  1. SYNRIBO [Suspect]
     Active Substance: OMACETAXINE MEPESUCCINATE
     Indication: ACUTE PROMYELOCYTIC LEUKAEMIA
     Dosage: HOME ADMINISTRATION
     Route: 058

REACTIONS (1)
  - Disease progression [Fatal]
